FAERS Safety Report 4713380-4 (Version None)
Quarter: 2005Q3

REPORT INFORMATION
  Report Type: 
  Country: None (occurrence: None)
  Receive Date: 20050701
  Receipt Date: 20041209
  Transmission Date: 20060218
  Serious: Yes (Hospitalization)
  Sender: FDA-Public Use
  Company Number: US-2004-032835

PATIENT
  Age: 25 Year
  Sex: Female
  Weight: 76.2 kg

DRUGS (3)
  1. YASMIN [Suspect]
     Indication: ORAL CONTRACEPTION
     Dosage: 1 TAB(S), 1X/DAY, ORAL
     Route: 048
     Dates: start: 20040801, end: 20041001
  2. LEVOXYL [Concomitant]
  3. THYROID TAB [Concomitant]

REACTIONS (2)
  - CEREBROVASCULAR ACCIDENT [None]
  - SPORTS INJURY [None]
